FAERS Safety Report 15193139 (Version 1)
Quarter: 2018Q3

REPORT INFORMATION
  Report Type: Spontaneous
  Country: US (occurrence: US)
  Receive Date: 20180725
  Receipt Date: 20180725
  Transmission Date: 20181010
  Serious: Yes (Death)
  Sender: FDA-Public Use
  Company Number: US-HORIZON-PRE-0325-2018

PATIENT
  Age: 53 Year
  Sex: Male

DRUGS (1)
  1. PREDNISONE. [Suspect]
     Active Substance: PREDNISONE
     Indication: CHONDROCALCINOSIS PYROPHOSPHATE
     Dosage: 40 MG DAILY
     Route: 048

REACTIONS (1)
  - Blastomycosis [Fatal]
